FAERS Safety Report 17138300 (Version 1)
Quarter: 2019Q4

REPORT INFORMATION
  Report Type: Spontaneous
  Country: NO (occurrence: NO)
  Receive Date: 20191211
  Receipt Date: 20191211
  Transmission Date: 20200122
  Serious: Yes (Life-Threatening, Hospitalization, Disabling)
  Sender: FDA-Public Use
  Company Number: NO-TEVA-2019-NO-1148641

PATIENT
  Age: 70 Year
  Sex: Male

DRUGS (2)
  1. PREDNISOLONE. [Suspect]
     Active Substance: PREDNISOLONE
     Indication: RHEUMATOID ARTHRITIS
     Dosage: GRADUALLY DECLINING DOSES
     Route: 048
     Dates: start: 20190825, end: 20190916
  2. ENBREL [Suspect]
     Active Substance: ETANERCEPT
     Indication: RHEUMATOID ARTHRITIS
     Dosage: 50 MG X 1 PER WEEK
     Route: 058
     Dates: start: 20190811

REACTIONS (2)
  - Intervertebral discitis [Recovering/Resolving]
  - Extradural abscess [Recovering/Resolving]

NARRATIVE: CASE EVENT DATE: 20190920
